FAERS Safety Report 6812810-1 (Version None)
Quarter: 2010Q3

REPORT INFORMATION
  Report Type: 
  Country: None (occurrence: None)
  Receive Date: 20100701
  Receipt Date: 20100623
  Transmission Date: 20110219
  Serious: Yes (Death, Life-Threatening, Hospitalization, Disabling, Other)
  Sender: FDA-Public Use
  Company Number: B0663161A

PATIENT
  Sex: Female
  Weight: 70 kg

DRUGS (3)
  1. ARIXTRA [Suspect]
     Dosage: 2.5ML PER DAY
     Route: 058
     Dates: start: 20100615, end: 20100622
  2. ACETYLSALICYLIC ACID [Concomitant]
     Dosage: 300MG PER DAY
     Route: 065
     Dates: start: 20100615, end: 20100622
  3. CLOPIDOGREL [Concomitant]
     Dosage: 75MG PER DAY
     Route: 065
     Dates: start: 20100615, end: 20100622

REACTIONS (4)
  - CARDIOGENIC SHOCK [None]
  - CORONARY ARTERY THROMBOSIS [None]
  - DRUG INEFFECTIVE [None]
  - MYOCARDIAL INFARCTION [None]
